FAERS Safety Report 5634691-4 (Version None)
Quarter: 2008Q1

REPORT INFORMATION
  Report Type: 
  Country: None (occurrence: None)
  Receive Date: 20080131
  Receipt Date: 20071105
  Transmission Date: 20080703
  Serious: No
  Sender: FDA-Public Use
  Company Number: 163-21880-07110442

PATIENT
  Age: 87 Year
  Sex: Male

DRUGS (2)
  1. REVLIMID [Suspect]
     Indication: MULTIPLE MYELOMA
     Dosage: 15 MG, DAILY X 21 DAYS, ORAL ; 10 MG, DAILY X 21 DAYS, ORAL
     Route: 048
     Dates: start: 20061127, end: 20071001
  2. REVLIMID [Suspect]
     Indication: MULTIPLE MYELOMA
     Dosage: 15 MG, DAILY X 21 DAYS, ORAL ; 10 MG, DAILY X 21 DAYS, ORAL
     Route: 048
     Dates: start: 20071101

REACTIONS (3)
  - GASTROINTESTINAL DISORDER [None]
  - HYPERHIDROSIS [None]
  - PAIN [None]
